FAERS Safety Report 5895574-8 (Version None)
Quarter: 2008Q3

REPORT INFORMATION
  Report Type: 
  Country: None (occurrence: None)
  Receive Date: 20080924
  Receipt Date: 20080507
  Transmission Date: 20090109
  Serious: No
  Sender: FDA-Public Use
  Company Number: US-ASTRAZENECA-2006UW08060

PATIENT
  Age: 603 Month
  Sex: Female
  Weight: 114.8 kg

DRUGS (2)
  1. SEROQUEL [Suspect]
     Indication: INSOMNIA
     Dosage: 25 MG, 400 MG, 600 MG
     Route: 048
     Dates: start: 20020101, end: 20061001
  2. SEROQUEL [Suspect]
     Indication: ANXIETY
     Dosage: 25 MG, 400 MG, 600 MG
     Route: 048
     Dates: start: 20020101, end: 20061001

REACTIONS (5)
  - BLOOD TRIGLYCERIDES INCREASED [None]
  - BRONCHITIS [None]
  - DIABETES MELLITUS [None]
  - OBESITY [None]
  - UPPER RESPIRATORY TRACT INFECTION [None]
